FAERS Safety Report 5771631-1 (Version None)
Quarter: 2008Q2

REPORT INFORMATION
  Report Type: 
  Country: None (occurrence: None)
  Receive Date: 20080612
  Receipt Date: 20080612
  Transmission Date: 20081010
  Serious: No
  Sender: FDA-Public Use
  Company Number: None

PATIENT

DRUGS (1)
  1. PERCOCET [Suspect]

REACTIONS (5)
  - DEPRESSION [None]
  - DRUG DEPENDENCE [None]
  - IMPAIRED WORK ABILITY [None]
  - LETHARGY [None]
  - SOCIAL AVOIDANT BEHAVIOUR [None]
